FAERS Safety Report 16909722 (Version 1)
Quarter: 2019Q4

REPORT INFORMATION
  Report Type: Spontaneous
  Country: US (occurrence: US)
  Receive Date: 20191011
  Receipt Date: 20191011
  Transmission Date: 20200122
  Serious: Yes (Life-Threatening, Hospitalization)
  Sender: FDA-Public Use
  Company Number: None

PATIENT
  Age: 62 Year
  Sex: Male
  Weight: 136.8 kg

DRUGS (12)
  1. APPHAGAN P [Concomitant]
  2. VITAMIN C [Concomitant]
     Active Substance: ASCORBIC ACID
  3. PRAVASTATIN TABS 80MG GENERIC FOR: PRAVACHOL TABS [Suspect]
     Active Substance: PRAVASTATIN SODIUM
     Indication: LOW DENSITY LIPOPROTEIN
     Dosage: ?          QUANTITY:1 TABLET(S);?
     Route: 048
     Dates: start: 20190807
  4. HUMALOG [Concomitant]
     Active Substance: INSULIN LISPRO
  5. LUMAGAN [Concomitant]
  6. POTASSIUM CHLORIDE. [Concomitant]
     Active Substance: POTASSIUM CHLORIDE
  7. METOPROLOL TARTRATE. [Concomitant]
     Active Substance: METOPROLOL TARTRATE
  8. LANTUS [Concomitant]
     Active Substance: INSULIN GLARGINE
  9. DYAZIDE [Concomitant]
     Active Substance: HYDROCHLOROTHIAZIDE\TRIAMTERENE
  10. CPAP [Concomitant]
     Active Substance: DEVICE
  11. CVS MULTIVITAMIN [Concomitant]
  12. OMEGA 3-6-9 [Concomitant]
     Active Substance: FISH OIL

REACTIONS (2)
  - Ventricular extrasystoles [None]
  - Therapy change [None]

NARRATIVE: CASE EVENT DATE: 20190815
